FAERS Safety Report 5299372-8 (Version None)
Quarter: 2007Q2

REPORT INFORMATION
  Report Type: 
  Country: None (occurrence: None)
  Receive Date: 20070411
  Receipt Date: 20070411
  Transmission Date: 20071010
  Serious: Yes (Other)
  Sender: FDA-Public Use
  Company Number: None

PATIENT
  Sex: Male
  Weight: 72.5755 kg

DRUGS (1)
  1. ZELNORM [Suspect]
     Indication: CONSTIPATION
     Dosage: 6MG 1-2 TIMES DAILY ORAL DAILY 047
     Route: 048
     Dates: start: 20060424

REACTIONS (2)
  - CHEST PAIN [None]
  - DYSPNOEA [None]
